FAERS Safety Report 5511087-7 (Version None)
Quarter: 2007Q4

REPORT INFORMATION
  Report Type: 
  Country: None (occurrence: None)
  Receive Date: 20071107
  Receipt Date: 20071024
  Transmission Date: 20080405
  Serious: Yes (Other)
  Sender: FDA-Public Use
  Company Number: 163311ISR

PATIENT
  Age: 46 Year
  Sex: Female

DRUGS (1)
  1. COPAXONE [Suspect]
     Indication: MULTIPLE SCLEROSIS
     Dosage: 20 MG (20 MG, 1 IN 1 D),  SUBCUTANEOUS
     Route: 058
     Dates: start: 20070924, end: 20071024

REACTIONS (7)
  - BLOOD PRESSURE INCREASED [None]
  - CARDIOVASCULAR DISORDER [None]
  - DYSPNOEA [None]
  - FEELING HOT [None]
  - MYOCARDIAL CALCIFICATION [None]
  - PRESYNCOPE [None]
  - TACHYCARDIA [None]
